FAERS Safety Report 9670513 (Version 2)
Quarter: 2013Q4

REPORT INFORMATION
  Report Type: Report from Study
  Country: FR (occurrence: FR)
  Receive Date: 20131106
  Receipt Date: 20131202
  Transmission Date: 20140711
  Serious: Yes (Hospitalization, Disabling, Other)
  Sender: FDA-Public Use
  Company Number: FR-BIOGENIDEC-2013BI104267

PATIENT
  Age: 52 Year
  Sex: Male

DRUGS (5)
  1. TYSABRI [Suspect]
     Indication: MULTIPLE SCLEROSIS
     Route: 042
     Dates: start: 20080515, end: 20131015
  2. TRILEPTAL [Concomitant]
     Indication: NEURALGIA
  3. RIVOTRIL [Concomitant]
     Indication: NEURALGIA
  4. NEURONTIN [Concomitant]
     Indication: TRIGEMINAL NEURALGIA
  5. SOLUMEDROL [Concomitant]

REACTIONS (1)
  - Progressive multifocal leukoencephalopathy [Not Recovered/Not Resolved]
